FAERS Safety Report 24734177 (Version 1)
Quarter: 2024Q4

REPORT INFORMATION
  Report Type: Spontaneous
  Country: JP (occurrence: JP)
  Receive Date: 20241214
  Receipt Date: 20241214
  Transmission Date: 20250114
  Serious: No
  Sender: ALKEM
  Company Number: JP-ALKEM LABORATORIES LIMITED-JP-ALKEM-2024-04538

PATIENT
  Age: 5 Decade
  Sex: Male

DRUGS (6)
  1. MYCOPHENOLATE MOFETIL [Interacting]
     Active Substance: MYCOPHENOLATE MOFETIL
     Indication: Lupus nephritis
     Dosage: UNK
     Route: 065
  2. MYCOPHENOLATE MOFETIL [Interacting]
     Active Substance: MYCOPHENOLATE MOFETIL
     Dosage: 1.5 G/DAY
     Route: 065
  3. MYCOPHENOLATE MOFETIL [Interacting]
     Active Substance: MYCOPHENOLATE MOFETIL
     Dosage: 2.0 G/DAY (DOSE INCREASED)
     Route: 065
  4. MYCOPHENOLATE MOFETIL [Interacting]
     Active Substance: MYCOPHENOLATE MOFETIL
     Dosage: 1.75 G/DAY (DOSE REDUCED)
     Route: 065
  5. SACUBITRIL\VALSARTAN [Interacting]
     Active Substance: SACUBITRIL\VALSARTAN
     Indication: Blood pressure management
     Dosage: 97/103 MG/DAY ON DAY 29
     Route: 065
  6. SACUBITRIL\VALSARTAN [Interacting]
     Active Substance: SACUBITRIL\VALSARTAN
     Dosage: 49/51 MG/DAY (DOSE DECREASED)
     Route: 065

REACTIONS (3)
  - Immunosuppressant drug level decreased [Recovered/Resolved]
  - Drug interaction [Unknown]
  - Pyrexia [Recovered/Resolved]
